FAERS Safety Report 18748642 (Version 1)
Quarter: 2021Q1

REPORT INFORMATION
  Report Type: Spontaneous
  Country: CN (occurrence: CN)
  Receive Date: 20210115
  Receipt Date: 20210115
  Transmission Date: 20210419
  Serious: Yes (Other)
  Sender: FDA-Public Use
  Company Number: CN-009507513-2101CHN004000

PATIENT
  Age: 67 Year
  Sex: Female
  Weight: 50 kg

DRUGS (2)
  1. IMIPENEM AND CILASTATIN [Suspect]
     Active Substance: CILASTATIN SODIUM\IMIPENEM
     Indication: UROSEPSIS
     Dosage: 1 GRAM EVERY 6 HOURS
  2. VANCOMYCIN [Suspect]
     Active Substance: VANCOMYCIN
     Indication: UROSEPSIS

REACTIONS (1)
  - Treatment failure [Recovered/Resolved]
